FAERS Safety Report 4318208-2 (Version None)
Quarter: 2004Q1

REPORT INFORMATION
  Report Type: 
  Country: None (occurrence: None)
  Receive Date: 20040317
  Receipt Date: 20040224
  Transmission Date: 20041129
  Serious: Yes (Hospitalization)
  Sender: FDA-Public Use
  Company Number: ES-BRISTOL-MYERS SQUIBB COMPANY-12516084

PATIENT
  Age: 65 Year
  Sex: Male
  Weight: 80 kg

DRUGS (13)
  1. TAXOL [Suspect]
     Indication: NON-SMALL CELL LUNG CANCER
     Route: 042
     Dates: start: 20030924
  2. EUGLUCON [Concomitant]
     Dates: start: 19930101
  3. NORVASC [Concomitant]
     Dates: start: 19930101
  4. TRALGIOL [Concomitant]
     Dates: start: 20030901
  5. CESPLON [Concomitant]
     Dates: start: 19930101
  6. SEGURIL [Concomitant]
     Dates: start: 20031219
  7. OMAPREN [Concomitant]
     Dates: start: 20030901
  8. ERITROPOYETINA [Concomitant]
     Dosage: 3000 UI
     Dates: start: 20031022
  9. FERO-GRADUMET [Concomitant]
     Dates: start: 20031029
  10. ORFIDAL [Concomitant]
     Dates: start: 20030901
  11. HALOPERIDOL [Concomitant]
     Dates: start: 20031201
  12. NOLOTIL [Concomitant]
     Dates: start: 20030901
  13. DURAGESIC [Concomitant]
     Dates: start: 20031201

REACTIONS (4)
  - ACUTE PULMONARY OEDEMA [None]
  - ATRIAL FIBRILLATION [None]
  - CARDIAC FAILURE [None]
  - RESPIRATORY FAILURE [None]
